FAERS Safety Report 6111508-5 (Version None)
Quarter: 2009Q1

REPORT INFORMATION
  Report Type: 
  Country: None (occurrence: None)
  Receive Date: 20090309
  Receipt Date: 20090224
  Transmission Date: 20090719
  Serious: Yes (Other)
  Sender: FDA-Public Use
  Company Number: IT-2009-0403

PATIENT
  Age: 31 Year
  Sex: Female

DRUGS (3)
  1. NAVELBINE [Suspect]
     Indication: HODGKIN'S DISEASE
  2. IFOSFAMIDE [Suspect]
     Indication: HODGKIN'S DISEASE
  3. GEMCITABINE [Suspect]
     Indication: HODGKIN'S DISEASE

REACTIONS (1)
  - PALMAR-PLANTAR ERYTHRODYSAESTHESIA SYNDROME [None]
